FAERS Safety Report 18092868 (Version 4)
Quarter: 2020Q3

REPORT INFORMATION
  Report Type: Spontaneous
  Country: US (occurrence: US)
  Receive Date: 20200730
  Receipt Date: 20200928
  Transmission Date: 20201103
  Serious: No
  Sender: FDA-Public Use
  Company Number: US-TAKEDA-2020TUS032668

PATIENT
  Age: 18 Year
  Sex: Female
  Weight: 71.66 kg

DRUGS (1)
  1. ENTYVIO [Suspect]
     Active Substance: VEDOLIZUMAB
     Indication: COLITIS ULCERATIVE
     Dosage: 300 MILLIGRAM
     Route: 042
     Dates: start: 20200727, end: 20200727

REACTIONS (6)
  - Dizziness [Unknown]
  - Vomiting [Recovered/Resolved]
  - Nervousness [Unknown]
  - Loss of consciousness [Recovered/Resolved]
  - Anxiety [Unknown]
  - Nausea [Unknown]

NARRATIVE: CASE EVENT DATE: 20200727
